FAERS Safety Report 17516675 (Version 1)
Quarter: 2020Q1

REPORT INFORMATION
  Report Type: Spontaneous
  Country: US (occurrence: US)
  Receive Date: 20200227
  Receipt Date: 20200227
  Transmission Date: 20200409
  Serious: Yes (Hospitalization)
  Sender: FDA-Public Use
  Company Number: None

PATIENT
  Sex: Male
  Weight: 70 kg

DRUGS (3)
  1. ABIRATERONE ACETATE. [Concomitant]
     Active Substance: ABIRATERONE ACETATE
  2. CABAZITAXEL [Suspect]
     Active Substance: CABAZITAXEL
  3. PREDNISONE. [Concomitant]
     Active Substance: PREDNISONE

REACTIONS (10)
  - Febrile neutropenia [None]
  - Diarrhoea [None]
  - Hypotension [None]
  - Tremor [None]
  - Laboratory test interference [None]
  - Bacterial infection [None]
  - Atrial fibrillation [None]
  - Cough [None]
  - Sepsis [None]
  - Blood culture positive [None]

NARRATIVE: CASE EVENT DATE: 20200215
